FAERS Safety Report 6385174-8 (Version None)
Quarter: 2009Q4

REPORT INFORMATION
  Report Type: 
  Country: None (occurrence: None)
  Receive Date: 20091002
  Receipt Date: 20081114
  Transmission Date: 20100525
  Serious: No
  Sender: FDA-Public Use
  Company Number: US-ASTRAZENECA-2005UW11988

PATIENT
  Age: 64 Year
  Sex: Female
  Weight: 89.4 kg

DRUGS (19)
  1. ARIMIDEX [Suspect]
     Indication: BREAST CANCER
     Route: 048
     Dates: start: 20050101
  2. AMARYL [Concomitant]
  3. GLUCOPHAGE [Concomitant]
  4. PRILOSEC OTC [Concomitant]
  5. ACCUPRIL [Concomitant]
  6. FUROSEMIDE [Concomitant]
  7. MOBIC [Concomitant]
  8. ULTRACET [Concomitant]
  9. FLEXERIL [Concomitant]
  10. POTASSIUM CHLORIDE [Concomitant]
  11. TUMS [Concomitant]
  12. ASPIRIN [Concomitant]
  13. MENTAX [Concomitant]
  14. VITAMIN B COMPLEX CAP [Concomitant]
  15. ASCORBIC ACID [Concomitant]
  16. FISH OIL [Concomitant]
  17. NONI JUICE [Concomitant]
  18. PRAVACHOL [Concomitant]
  19. FOSAMAX [Concomitant]

REACTIONS (8)
  - ARTHRALGIA [None]
  - ARTHRITIS [None]
  - BACK PAIN [None]
  - FLATULENCE [None]
  - MUSCLE SPASMS [None]
  - NAUSEA [None]
  - PRURITUS [None]
  - TENDONITIS [None]
